FAERS Safety Report 15451972 (Version 1)
Quarter: 2018Q4

REPORT INFORMATION
  Report Type: Report from Study
  Country: IT (occurrence: IT)
  Receive Date: 20181001
  Receipt Date: 20181001
  Transmission Date: 20190204
  Serious: Yes (Other)
  Sender: FDA-Public Use
  Company Number: IT-PFIZER INC-2018389759

PATIENT
  Age: 41 Year
  Sex: Female

DRUGS (2)
  1. BASSADO [Suspect]
     Active Substance: DOXYCYCLINE HYCLATE
     Dosage: UNK
  2. PROGYNOVA [ESTRADIOL] [Concomitant]
     Dosage: UNK

REACTIONS (5)
  - Neck pain [Unknown]
  - Epigastric discomfort [Unknown]
  - Abdominal pain upper [Unknown]
  - Chronic gastritis [Unknown]
  - Migraine [Unknown]
